FAERS Safety Report 11684016 (Version 1)
Quarter: 2015Q4

REPORT INFORMATION
  Report Type: Spontaneous
  Country: US (occurrence: US)
  Receive Date: 20151029
  Receipt Date: 20151029
  Transmission Date: 20160304
  Serious: Yes (Death, Other)
  Sender: FDA-Public Use
  Company Number: US-009507513-1510USA014863

PATIENT
  Sex: Female

DRUGS (1)
  1. JANUVIA [Suspect]
     Active Substance: SITAGLIPTIN PHOSPHATE
     Dosage: UNK
     Route: 048
     Dates: start: 201006, end: 201212

REACTIONS (2)
  - Death [Fatal]
  - Pancreatic carcinoma [Unknown]

NARRATIVE: CASE EVENT DATE: 20121119
